FAERS Safety Report 6653625-7 (Version None)
Quarter: 2010Q1

REPORT INFORMATION
  Report Type: 
  Country: None (occurrence: None)
  Receive Date: 20100326
  Receipt Date: 20100323
  Transmission Date: 20100710
  Serious: Yes (Hospitalization, Disabling)
  Sender: FDA-Public Use
  Company Number: JP-B.I. PHARMACEUTICALS,INC./RIDGEFIELD-2010-BP-02940NB

PATIENT
  Sex: Male
  Weight: 42 kg

DRUGS (12)
  1. MICARDIS [Suspect]
     Indication: HYPERTENSION
     Dosage: 80 MG
     Route: 048
     Dates: start: 20070316, end: 20080815
  2. NORVASC [Concomitant]
     Indication: HYPERTENSION
     Dosage: 5 MG
     Route: 048
  3. FAMOTIDINE [Concomitant]
     Indication: GASTROENTERITIS
     Dosage: 10 MG
     Route: 048
  4. SODIUM BICARBONATE [Concomitant]
     Indication: RENAL FAILURE CHRONIC
     Dosage: 4.5 G
     Route: 048
     Dates: start: 20060101
  5. URALYT U [Concomitant]
     Indication: HYPERURICAEMIA
     Dosage: 3 G
     Route: 048
     Dates: start: 20060101
  6. SEVEN E_P [Concomitant]
     Indication: GASTROENTERITIS
     Dosage: 3DF
     Route: 048
     Dates: start: 20060101
  7. TRANCOLON [Concomitant]
     Indication: GASTROENTERITIS
     Dosage: 15 MG
     Route: 048
     Dates: start: 20060101
  8. LOPEMIN [Concomitant]
     Indication: GASTROENTERITIS
     Dosage: 2 MG
     Route: 048
  9. CLARITIN [Concomitant]
     Indication: RENAL FAILURE CHRONIC
     Dosage: 10 MG
     Route: 048
  10. ALINAMIN-F [Concomitant]
     Indication: PROPHYLAXIS
     Dosage: 25 MG
     Route: 048
     Dates: start: 20060101
  11. ESPO SUBCUTANEOUS INJECTION [Concomitant]
     Indication: RENAL FAILURE CHRONIC
     Dosage: 12000 U
     Route: 058
     Dates: start: 20051216
  12. SELBEX [Concomitant]
     Indication: PROPHYLAXIS
     Dosage: 150 MG
     Route: 048
     Dates: start: 20080801, end: 20080814

REACTIONS (3)
  - FALL [None]
  - FRACTURE [None]
  - RENAL FAILURE CHRONIC [None]
